FAERS Safety Report 5310278-8 (Version None)
Quarter: 2007Q2

REPORT INFORMATION
  Report Type: 
  Country: None (occurrence: None)
  Receive Date: 20070427
  Receipt Date: 20070418
  Transmission Date: 20071010
  Serious: Yes (Other)
  Sender: FDA-Public Use
  Company Number: CA-ABBOTT-07P-028-0360839-00

PATIENT
  Sex: Male
  Weight: 77.18 kg

DRUGS (1)
  1. HUMIRA [Suspect]
     Indication: ANKYLOSING SPONDYLITIS
     Route: 058
     Dates: start: 20061002, end: 20070204

REACTIONS (5)
  - ANGER [None]
  - DEPRESSION [None]
  - DISSOCIATION [None]
  - FRUSTRATION [None]
  - SUICIDAL IDEATION [None]
